FAERS Safety Report 4440715-2 (Version None)
Quarter: 2004Q3

REPORT INFORMATION
  Report Type: 
  Country: None (occurrence: None)
  Receive Date: 20040728
  Receipt Date: 20040311
  Transmission Date: 20050211
  Serious: No
  Sender: FDA-Public Use
  Company Number: USA040361848

PATIENT
  Age: 16 Year
  Sex: Male
  Weight: 68 kg

DRUGS (5)
  1. STRATTERA [Suspect]
     Indication: ATTENTION DEFICIT/HYPERACTIVITY DISORDER
     Dosage: 80 MG DAY
     Dates: start: 20040201
  2. ALTACE [Concomitant]
  3. INSULIN [Concomitant]
  4. ALCOHOL [Concomitant]
  5. MARIJUANA [Concomitant]

REACTIONS (3)
  - ABNORMAL BEHAVIOUR [None]
  - AGGRESSION [None]
  - WEIGHT DECREASED [None]
